FAERS Safety Report 10195999 (Version 1)
Quarter: 2014Q2

REPORT INFORMATION
  Report Type: Report from Study
  Country: KR (occurrence: KR)
  Receive Date: 20140527
  Receipt Date: 20140527
  Transmission Date: 20141212
  Serious: Yes (Death, Hospitalization, Other)
  Sender: FDA-Public Use
  Company Number: PHHY2014KR063282

PATIENT
  Age: 73 Year
  Sex: Male
  Weight: 50 kg

DRUGS (1)
  1. INDACATEROL [Suspect]
     Indication: CHRONIC OBSTRUCTIVE PULMONARY DISEASE
     Dosage: 150 UG, UNK
     Route: 055
     Dates: start: 20131108, end: 20140507

REACTIONS (5)
  - Sepsis [Fatal]
  - Abdominal distension [Fatal]
  - Hypophagia [Fatal]
  - Vomiting [Fatal]
  - Condition aggravated [Unknown]
